FAERS Safety Report 7436873-8 (Version None)
Quarter: 2011Q2

REPORT INFORMATION
  Report Type: 
  Country: None (occurrence: None)
  Receive Date: 20110426
  Receipt Date: 20110307
  Transmission Date: 20111010
  Serious: Yes (Hospitalization, Other)
  Sender: FDA-Public Use
  Company Number: US-BAYER-201028029NA

PATIENT
  Age: 35 Year
  Sex: Female
  Weight: 74.83 kg

DRUGS (7)
  1. YASMIN [Suspect]
     Route: 048
     Dates: start: 20050501, end: 20080901
  2. GEODON [Concomitant]
     Indication: BIPOLAR DISORDER
     Dosage: 80 MG, BID
     Route: 048
     Dates: start: 20050622
  3. IBUPROFEN [IBUPROFEN SODIUM] [Concomitant]
     Indication: HEADACHE
     Dosage: 200 MG, PRN
  4. HORMONAL CONTRACEPTIVES FOR SYSTEMIC USE [Concomitant]
     Dosage: UNK
     Dates: start: 20081002
  5. VYVANSE [Concomitant]
     Indication: ATTENTION DEFICIT/HYPERACTIVITY DISORDER
     Dosage: 50 MG, QD
     Route: 048
     Dates: start: 20080506
  6. LAMICTAL [Concomitant]
     Indication: BIPOLAR DISORDER
     Dosage: 150 MG, QD
     Route: 048
     Dates: start: 20060308
  7. NEXIUM [Concomitant]
     Dosage: 40 MG, QD
     Route: 048
     Dates: start: 20081216

REACTIONS (3)
  - CHOLELITHIASIS [None]
  - GALLBLADDER DISORDER [None]
  - ABDOMINAL PAIN [None]
